FAERS Safety Report 12316443 (Version 2)
Quarter: 2016Q2

REPORT INFORMATION
  Report Type: Spontaneous
  Country: DE (occurrence: DE)
  Receive Date: 20160429
  Receipt Date: 20160503
  Transmission Date: 20160815
  Serious: No
  Sender: FDA-Public Use
  Company Number: DE-EMD SERONO-8077603

PATIENT
  Age: 45 Year
  Sex: Female
  Weight: 74 kg

DRUGS (5)
  1. DEKRISTOL [Concomitant]
     Active Substance: CHOLECALCIFEROL
     Indication: VITAMIN D DEFICIENCY
     Route: 048
     Dates: start: 20151217
  2. REBIF [Suspect]
     Active Substance: INTERFERON BETA-1A
     Indication: RELAPSING-REMITTING MULTIPLE SCLEROSIS
     Route: 058
     Dates: start: 20160223, end: 20160305
  3. REBIF [Suspect]
     Active Substance: INTERFERON BETA-1A
     Route: 058
     Dates: start: 20160321, end: 20160405
  4. NOVAMINSULFON [Concomitant]
     Active Substance: METAMIZOLE
     Indication: PREMEDICATION
     Dosage: 500 UNSPECIFIED UNITS
     Route: 048
     Dates: start: 20160223, end: 20160404
  5. REBIF [Suspect]
     Active Substance: INTERFERON BETA-1A
     Route: 058
     Dates: start: 20160307, end: 20160318

REACTIONS (4)
  - Alanine aminotransferase abnormal [Not Recovered/Not Resolved]
  - Aspartate aminotransferase abnormal [Not Recovered/Not Resolved]
  - Abdominal pain [Unknown]
  - Gamma-glutamyltransferase abnormal [Not Recovered/Not Resolved]

NARRATIVE: CASE EVENT DATE: 20160329
